FAERS Safety Report 9899553 (Version 2)
Quarter: 2014Q2

REPORT INFORMATION
  Report Type: Not Available
  Country: NO (occurrence: NO)
  Receive Date: 20140214
  Receipt Date: 20140404
  Transmission Date: 20141212
  Serious: Yes (Death)
  Sender: FDA-Public Use
  Company Number: NO-NAPPMUNDI-GBR-2014-0017094

PATIENT
  Sex: 0

DRUGS (18)
  1. MORPHINE SULFATE [Suspect]
     Indication: PRODUCT USED FOR UNKNOWN INDICATION
  2. TRAMADOL HCL [Interacting]
     Indication: PRODUCT USED FOR UNKNOWN INDICATION
  3. BUPRENORPHINE [Interacting]
     Indication: PRODUCT USED FOR UNKNOWN INDICATION
  4. OXYCODONE HYDROCHLORIDE [Interacting]
     Indication: PRODUCT USED FOR UNKNOWN INDICATION
  5. OXAZEPAM [Interacting]
  6. FENTANYL [Interacting]
  7. ACETAMINOPHEN [Interacting]
  8. ASPIRIN [Interacting]
  9. DIAZEPAM [Interacting]
  10. DIGITOXIN [Interacting]
  11. HYDROCHLOROTHIAZIDE [Interacting]
  12. MIDAZOLAM [Interacting]
  13. WARFARIN [Interacting]
  14. SIMVASTATIN [Interacting]
  15. KETOBEMIDONE [Interacting]
  16. ANTIMICROBIAL [Suspect]
  17. CORTICOSTEROIDS [Suspect]
  18. NSAID^S [Suspect]

REACTIONS (2)
  - Death [Fatal]
  - Drug interaction [Fatal]
